FAERS Safety Report 8519052 (Version 3)
Quarter: 2013Q2

REPORT INFORMATION
  Report Type: Spontaneous
  Country: US (occurrence: US)
  Receive Date: 20120418
  Receipt Date: 20130419
  Transmission Date: 20140414
  Serious: Yes (Other)
  Sender: FDA-Public Use
  Company Number: US-PFIZER INC-2012091768

PATIENT
  Sex: Female

DRUGS (2)
  1. EFFEXOR [Suspect]
     Dosage: UNK, 1X/DAY
     Route: 048
  2. EFFEXOR XR [Suspect]
     Dosage: UNK

REACTIONS (2)
  - Bone disorder [Unknown]
  - Pain [Unknown]
